FAERS Safety Report 20954125 (Version 1)
Quarter: 2022Q2

REPORT INFORMATION
  Report Type: Spontaneous
  Country: IT (occurrence: IT)
  Receive Date: 20220614
  Receipt Date: 20220614
  Transmission Date: 20220720
  Serious: Yes (Hospitalization)
  Sender: FDA-Public Use
  Company Number: None

PATIENT
  Age: 47 Year
  Sex: Male
  Weight: 100 kg

DRUGS (1)
  1. STELARA [Suspect]
     Active Substance: USTEKINUMAB
     Indication: Crohn^s disease
     Route: 058
     Dates: start: 20210430, end: 20220114

REACTIONS (5)
  - Venous thrombosis limb [Recovered/Resolved]
  - Microembolism [Recovered/Resolved]
  - Superficial vein thrombosis [Recovered/Resolved]
  - Citrobacter sepsis [Recovered/Resolved]
  - Acute kidney injury [Recovered/Resolved]

NARRATIVE: CASE EVENT DATE: 20220122
